FAERS Safety Report 17953397 (Version 1)
Quarter: 2020Q2

REPORT INFORMATION
  Report Type: Spontaneous
  Country: FR (occurrence: FR)
  Receive Date: 20200628
  Receipt Date: 20200628
  Transmission Date: 20200714
  Serious: Yes (Hospitalization)
  Sender: FDA-Public Use
  Company Number: NVSC2020FR175770

PATIENT
  Age: 28 Year
  Sex: Female

DRUGS (5)
  1. VENLAFAXINE [Suspect]
     Active Substance: VENLAFAXINE HYDROCHLORIDE
     Indication: INTENTIONAL OVERDOSE
     Dosage: 225 MG, QD
     Route: 048
     Dates: start: 20200414, end: 20200414
  2. LEPTICUR [Suspect]
     Active Substance: TROPATEPINE HYDROCHLORIDE
     Indication: INTENTIONAL OVERDOSE
     Dosage: 10 MG, QD (COMPRIM?)
     Route: 048
     Dates: start: 20200414, end: 20200414
  3. QUETIAPINE. [Suspect]
     Active Substance: QUETIAPINE
     Indication: INTENTIONAL OVERDOSE
     Dosage: 1650 MG, ONCE/SINGLE
     Route: 048
     Dates: start: 20200414, end: 20200414
  4. ZOPICLONE [Suspect]
     Active Substance: ZOPICLONE
     Indication: INTENTIONAL OVERDOSE
     Dosage: UNK (NP)
     Route: 048
     Dates: start: 20200414, end: 20200414
  5. SERESTA [Suspect]
     Active Substance: OXAZEPAM
     Indication: INTENTIONAL OVERDOSE
     Dosage: 900 MG, ONCE/SINGLE (COMPRIM? S?CABLE)
     Route: 048
     Dates: start: 20200414, end: 20200414

REACTIONS (2)
  - Coma [Recovered/Resolved]
  - Poisoning deliberate [Recovered/Resolved]

NARRATIVE: CASE EVENT DATE: 20200414
